FAERS Safety Report 5035263-5 (Version None)
Quarter: 2006Q2

REPORT INFORMATION
  Report Type: 
  Country: None (occurrence: None)
  Receive Date: 20060627
  Receipt Date: 20060601
  Transmission Date: 20061013
  Serious: Yes (Hospitalization)
  Sender: FDA-Public Use
  Company Number: PL-ROCHE-450224

PATIENT
  Age: 66 Year
  Sex: Female

DRUGS (7)
  1. TICLID [Suspect]
     Route: 048
  2. GLICLAZIDE [Concomitant]
  3. LOVASTATIN [Concomitant]
  4. ENALAPRIL [Concomitant]
  5. HYDROCHLOROTHIAZIDE [Concomitant]
  6. RANITIDINE [Concomitant]
  7. NITROFURANTOIN [Concomitant]

REACTIONS (10)
  - BLOOD CULTURE POSITIVE [None]
  - CONFUSIONAL STATE [None]
  - PANCYTOPENIA [None]
  - PNEUMONIA [None]
  - PSEUDOMONAS INFECTION [None]
  - RASH [None]
  - RASH MACULAR [None]
  - SEPTIC SHOCK [None]
  - STAPHYLOCOCCAL INFECTION [None]
  - TACHYCARDIA [None]
